FAERS Safety Report 4371515-X (Version None)
Quarter: 2004Q2

REPORT INFORMATION
  Report Type: 
  Country: None (occurrence: None)
  Receive Date: 20040602
  Receipt Date: 20040520
  Transmission Date: 20050107
  Serious: No
  Sender: FDA-Public Use
  Company Number: 2003UW13134

PATIENT
  Age: 44 Year
  Sex: Female

DRUGS (1)
  1. TOPROL-XL [Suspect]
     Dates: end: 20030101

REACTIONS (15)
  - ASTHENIA [None]
  - BLOOD CREATINE PHOSPHOKINASE INCREASED [None]
  - CARDIAC FAILURE [None]
  - CONDITION AGGRAVATED [None]
  - DYSSTASIA [None]
  - FATIGUE [None]
  - FIBROSIS [None]
  - HEPATIC ENZYME INCREASED [None]
  - MYOCARDITIS [None]
  - MYOSITIS [None]
  - PAIN [None]
  - SCLERODERMA [None]
  - SWELLING [None]
  - TENDERNESS [None]
  - WEIGHT DECREASED [None]
